FAERS Safety Report 8335381-X (Version None)
Quarter: 2012Q2

REPORT INFORMATION
  Report Type: 
  Country: None (occurrence: None)
  Receive Date: 20120503
  Receipt Date: 20120427
  Transmission Date: 20120825
  Serious: Yes (Life-Threatening)
  Sender: FDA-Public Use
  Company Number: US-MERCK-1203USA03631

PATIENT
  Age: 70 Year
  Sex: Male

DRUGS (2)
  1. FOSAPREPITANT DIMEGLUMINE [Suspect]
     Indication: PROPHYLAXIS OF NAUSEA AND VOMITING
     Route: 051
     Dates: start: 20120326
  2. ALOXI [Concomitant]
     Route: 065

REACTIONS (1)
  - BRONCHOSPASM [None]
